FAERS Safety Report 9365260 (Version 2)
Quarter: 2013Q3

REPORT INFORMATION
  Report Type: Spontaneous
  Country: US (occurrence: US)
  Receive Date: 20130625
  Receipt Date: 20130801
  Transmission Date: 20140515
  Serious: No
  Sender: FDA-Public Use
  Company Number: US-009507513-1306USA006775

PATIENT
  Age: 57 Year
  Sex: Female

DRUGS (14)
  1. ACETAMINOPHEN (+) HYDROCODONE BITARTRATE [Concomitant]
     Dosage: REPORTED AS 10-325 MG, QD
     Route: 048
  2. DULERA [Suspect]
     Dosage: UNK UNK, Q12H
     Route: 055
  3. CLONAZEPAM [Concomitant]
     Dosage: 1 DF, BID
     Route: 048
  4. POLYSPORIN TRIPLE ANTIBIOTIC OINTMENT [Concomitant]
     Dosage: 500 TO10000 UNIT PER GRAM, ONE APPLICATION TO AFFECTED AREA EXTERNALLY ONCE A DAY
  5. LYRICA [Concomitant]
     Dosage: 1 DF, BID
     Route: 048
  6. BENADRYL [Concomitant]
     Dosage: ONE TABLET AS NEEDED ORALLY Q 6 H, PRN
  7. OMEGA-3 [Concomitant]
     Dosage: ONE CAPSULE ONCE A DAY
     Route: 048
  8. VITAMINS (UNSPECIFIED) [Concomitant]
     Route: 048
  9. VISTARIL [Concomitant]
     Dosage: ONE CAPSULE ORALLY, BID
     Route: 048
  10. CITALOPRAM HYDROBROMIDE [Concomitant]
     Dosage: ONE TABLET ONCE A DAY
     Route: 048
  11. TRAZODONE HYDROCHLORIDE [Concomitant]
     Dosage: ONE TABLET, EVERY NIGHT AT BEDTIME, HS
     Route: 048
  12. CYCLOBENZAPRINE HYDROCHLORIDE [Concomitant]
     Dosage: TWICE A DAY(BID), AS NEEDED(PRN)
     Route: 048
  13. ESTRACE [Concomitant]
     Dosage: 1 DF, QD
     Route: 048
  14. PROAIR HFA [Concomitant]
     Dosage: 108(90 BASE) AEROSOL, INHALE 2 PUFFS BY MOUTH 4 TIMES A DAY AS NEEDED UPTO 2 PUFFS EVERY 2 HOURS PRN
     Route: 048

REACTIONS (1)
  - Adverse event [Unknown]
